FAERS Safety Report 14033242 (Version 1)
Quarter: 2017Q4

REPORT INFORMATION
  Report Type: Spontaneous
  Country: US (occurrence: US)
  Receive Date: 20171002
  Receipt Date: 20171002
  Transmission Date: 20180321
  Serious: Yes (Other)
  Sender: FDA-Public Use
  Company Number: None

PATIENT
  Age: 59 Year
  Sex: Male
  Weight: 119 kg

DRUGS (2)
  1. AGGRASTAT [Suspect]
     Active Substance: TIROFIBAN HYDROCHLORIDE
  2. HEPARIN [Suspect]
     Active Substance: HEPARIN SODIUM

REACTIONS (1)
  - Catheter site haemorrhage [None]

NARRATIVE: CASE EVENT DATE: 20171002
